FAERS Safety Report 23224318 (Version 1)
Quarter: 2023Q4

REPORT INFORMATION
  Report Type: Spontaneous
  Country: CA (occurrence: CA)
  Receive Date: 20231124
  Receipt Date: 20231124
  Transmission Date: 20240110
  Serious: Yes (Death, Other)
  Sender: FDA-Public Use
  Company Number: CA-SANDOZ-SDZ2023CA005526

PATIENT

DRUGS (2)
  1. DOCETAXEL [Suspect]
     Active Substance: DOCETAXEL\DOCETAXEL ANHYDROUS
     Indication: Small cell lung cancer
     Dosage: 100 MG/M2; 1-HOUR INTRAVENOUS INFUSION WAS ADMINISTERED EVERY 21 DAYS OR THE FIRST HALF OF THE TRIAL
     Route: 042
  2. DOCETAXEL [Suspect]
     Active Substance: DOCETAXEL\DOCETAXEL ANHYDROUS
     Dosage: 75 MG/M2; OVER 1 HOUR EVERY 3 WEEKS FOR THE SECOND HALF OF THE TRIAL
     Route: 065

REACTIONS (22)
  - Death [Fatal]
  - Toxicity to various agents [Fatal]
  - Febrile neutropenia [Fatal]
  - Small cell lung cancer [Unknown]
  - Thrombocytopenia [Unknown]
  - Pneumonia [Unknown]
  - Pulmonary toxicity [Unknown]
  - Cardiotoxicity [Unknown]
  - Neurotoxicity [Unknown]
  - Anaemia [Unknown]
  - Neurosensory hypoacusis [Unknown]
  - Nausea [Unknown]
  - Vomiting [Unknown]
  - Fluid retention [Unknown]
  - Weight decreased [Unknown]
  - Asthenia [Unknown]
  - Diarrhoea [Unknown]
  - Pyrexia [Unknown]
  - Hypertension [Unknown]
  - Hypotension [Unknown]
  - Infection [Unknown]
  - Stomatitis [Unknown]
